FAERS Safety Report 18307316 (Version 2)
Quarter: 2020Q3

REPORT INFORMATION
  Report Type: Report from Study
  Country: IT (occurrence: IT)
  Receive Date: 20200924
  Receipt Date: 20200927
  Transmission Date: 20201103
  Serious: Yes (Hospitalization)
  Sender: FDA-Public Use
  Company Number: IT-TEVA-2020-IT-1830123

PATIENT
  Age: 87 Year
  Sex: Male

DRUGS (12)
  1. ZYLORIC 100 MG COMPRESSE [Concomitant]
     Active Substance: ALLOPURINOL
  2. TRITTICO 50 MG COMPRESSE RIVESTITE CON FILM [Concomitant]
     Active Substance: TRAZODONE HYDROCHLORIDE
  3. FUROSEMIDE. [Concomitant]
     Active Substance: FUROSEMIDE
  4. SIMVASTATIN. [Concomitant]
     Active Substance: SIMVASTATIN
  5. BASSADO 100 MG COMPRESSE [Concomitant]
  6. DILTIAZEM DOC GENERICI 60 MG COMPRESSE [Concomitant]
     Active Substance: DILTIAZEM
  7. COUMADIN [Interacting]
     Active Substance: WARFARIN SODIUM
     Indication: ATRIAL FIBRILLATION
     Dosage: 1 DF
     Route: 048
     Dates: start: 20191225, end: 20200713
  8. CLOPIXOL 10 MG COMPRESSE RIVESTITE CON FILM [Concomitant]
     Active Substance: ZUCLOPENTHIXOL
  9. KANRENOL  25 COMPRESSE [Concomitant]
  10. PANTOPRAZOLE [Concomitant]
     Active Substance: PANTOPRAZOLE
  11. CLOPIDOGREL [Suspect]
     Active Substance: CLOPIDOGREL BISULFATE
     Indication: ATRIAL FIBRILLATION
     Dosage: 75 MG
     Route: 048
     Dates: start: 20180720, end: 20200713
  12. FOLINA 5 MG CAPSULE MOLLI [Concomitant]

REACTIONS (3)
  - Traumatic haemorrhage [Recovering/Resolving]
  - Drug interaction [Recovering/Resolving]
  - Fall [Recovering/Resolving]

NARRATIVE: CASE EVENT DATE: 20200713
